FAERS Safety Report 22523558 (Version 1)
Quarter: 2023Q2

REPORT INFORMATION
  Report Type: Report from Study
  Country: US (occurrence: US)
  Receive Date: 20230606
  Receipt Date: 20230606
  Transmission Date: 20230722
  Serious: Yes (Hospitalization)
  Sender: FDA-Public Use
  Company Number: US-ABBVIE-5276683

PATIENT
  Age: 65 Year
  Sex: Male

DRUGS (1)
  1. SKYRIZI [Suspect]
     Active Substance: RISANKIZUMAB-RZAA
     Indication: Psoriasis
     Dosage: FORM STRENGTH: 150 MILLIGRAM?WEEK 0.
     Route: 058
     Dates: start: 20230505

REACTIONS (3)
  - Labyrinthitis [Unknown]
  - Vertigo [Unknown]
  - Psoriasis [Unknown]

NARRATIVE: CASE EVENT DATE: 20230501
